FAERS Safety Report 14655083 (Version 1)
Quarter: 2018Q1

REPORT INFORMATION
  Report Type: Spontaneous
  Country: US (occurrence: US)
  Receive Date: 20180213
  Receipt Date: 20180213
  Transmission Date: 20180509
  Serious: Yes (Other)
  Sender: FDA-Public Use
  Company Number: None

PATIENT
  Age: 55 Year
  Sex: Female
  Weight: 64.3 kg

DRUGS (1)
  1. IMIPENEM AND CILASTATIN [Suspect]
     Active Substance: CILASTATIN SODIUM\IMIPENEM
     Indication: MYCOBACTERIAL INFECTION
     Route: 042
     Dates: start: 20170718, end: 20180205

REACTIONS (4)
  - Wrong dose [None]
  - Device deposit issue [None]
  - Product label issue [None]
  - Product preparation error [None]

NARRATIVE: CASE EVENT DATE: 20180205
